FAERS Safety Report 7653411-5 (Version None)
Quarter: 2011Q3

REPORT INFORMATION
  Report Type: 
  Country: None (occurrence: None)
  Receive Date: 20110803
  Receipt Date: 20110726
  Transmission Date: 20111222
  Serious: Yes (Hospitalization, Disabling, Other)
  Sender: FDA-Public Use
  Company Number: US-PFIZER INC-2011158619

PATIENT
  Sex: Female
  Weight: 75.7 kg

DRUGS (4)
  1. GLUCOPHAGE [Concomitant]
     Indication: DIABETES MELLITUS
     Dosage: 2.5 MG OR 5 MG, FREQUENCY UNKNOWN
  2. HYDROCHLOROTHIAZIDE [Concomitant]
     Indication: BLOOD PRESSURE ABNORMAL
  3. LOPRESSOR [Concomitant]
     Indication: BLOOD PRESSURE ABNORMAL
     Dosage: UNKNOWN DOSE, 2X DAILY
  4. PREMPRO [Suspect]
     Indication: HOT FLUSH
     Dosage: 5 MG, DAILY
     Route: 048
     Dates: start: 20000901

REACTIONS (8)
  - CEREBROVASCULAR ACCIDENT [None]
  - DYSGRAPHIA [None]
  - URINARY INCONTINENCE [None]
  - ABASIA [None]
  - MOVEMENT DISORDER [None]
  - SPEECH DISORDER [None]
  - FAECAL INCONTINENCE [None]
  - DRUG INEFFECTIVE [None]
